FAERS Safety Report 12873126 (Version 1)
Quarter: 2016Q4

REPORT INFORMATION
  Report Type: Spontaneous
  Country: US (occurrence: US)
  Receive Date: 20161021
  Receipt Date: 20161021
  Transmission Date: 20170207
  Serious: No
  Sender: FDA-Public Use
  Company Number: US-BAYER-2016-195544

PATIENT
  Age: 49 Year
  Sex: Female

DRUGS (4)
  1. NIFEDIPINE. [Suspect]
     Active Substance: NIFEDIPINE
     Dosage: 10 MG, DAILY
  2. ACARBOSE. [Suspect]
     Active Substance: ACARBOSE
     Dosage: 25 MG. BEFORE MEAL
  3. DIAZOXIDE [Concomitant]
     Active Substance: DIAZOXIDE
     Dosage: 3 MG/KG, DAILY
  4. VERAPAMIL [Concomitant]
     Active Substance: VERAPAMIL HYDROCHLORIDE

REACTIONS (2)
  - Dizziness [None]
  - Nausea [None]
